FAERS Safety Report 4876171-X (Version None)
Quarter: 2006Q1

REPORT INFORMATION
  Report Type: 
  Country: None (occurrence: None)
  Receive Date: 20060106
  Receipt Date: 20051227
  Transmission Date: 20060701
  Serious: Yes (Other)
  Sender: FDA-Public Use
  Company Number: RENA-11644

PATIENT
  Age: 73 Year
  Sex: Male

DRUGS (13)
  1. RENAGEL [Suspect]
     Indication: HYPERPHOSPHATAEMIA
     Dosage: 1 G TID PO
     Route: 048
     Dates: start: 20050415
  2. RENAGEL [Suspect]
     Indication: HYPERPHOSPHATAEMIA
     Dosage: 0.5 G TID PO
     Route: 048
     Dates: start: 20050408, end: 20050414
  3. CALTIN (CALCIUM CARBONATE) [Concomitant]
  4. MAGNESIUM OXIDE [Concomitant]
  5. ADALAT [Concomitant]
  6. MEVALOTIN [Concomitant]
  7. LASIX [Concomitant]
  8. HALCION [Concomitant]
  9. DEPAS [Concomitant]
  10. PERSANTIN [Concomitant]
  11. DEPROMEL [Concomitant]
  12. ALFAROL [Concomitant]
  13. NOVOLIN [Concomitant]

REACTIONS (1)
  - CONSTIPATION [None]
